FAERS Safety Report 7550253-6 (Version None)
Quarter: 2011Q2

REPORT INFORMATION
  Report Type: 
  Country: None (occurrence: None)
  Receive Date: 20110615
  Receipt Date: 20081007
  Transmission Date: 20111010
  Serious: Yes (Death, Other)
  Sender: FDA-Public Use
  Company Number: US-BAYER-200835460NA

PATIENT
  Age: 82 Year
  Sex: Female
  Weight: 88 kg

DRUGS (26)
  1. TRASYLOL [Suspect]
     Dosage: 200 ML BOLUS
     Route: 042
     Dates: start: 20031223, end: 20031223
  2. NORVASC [Concomitant]
     Dosage: UNK
     Route: 048
  3. ACTOS [Concomitant]
     Dosage: DAILY
     Route: 048
  4. BETAPACE [Concomitant]
     Dosage: 80 MG, BID
     Route: 048
  5. EFFEXOR [Concomitant]
     Dosage: 37.5/7.5 MG DAILY
     Route: 048
  6. CALCIUM CARBONATE [Concomitant]
     Dosage: 50 ML TOTAL INFUSED
     Route: 042
     Dates: start: 20031223, end: 20031223
  7. TRASYLOL [Suspect]
     Dosage: 200 ML PUMP PRIME DOSE
     Route: 042
     Dates: start: 20031223, end: 20031223
  8. SEROQUEL [Concomitant]
  9. CARDIZEM [Concomitant]
     Dosage: 3 ML PER HOUR
     Route: 042
     Dates: start: 20031223, end: 20031223
  10. FENTANYL [Concomitant]
     Dosage: 250 MG X 4 DOSED TOTAL INFUSED
     Route: 042
     Dates: start: 20031223, end: 20031223
  11. HYDRALAZINE HCL [Concomitant]
     Dosage: 10 MG TOTAL INFUSED
     Route: 042
     Dates: start: 20031223, end: 20031223
  12. VIOXX [Concomitant]
     Dosage: UNK
     Route: 048
  13. BEXTRA [Concomitant]
     Dosage: UNK
     Route: 048
  14. FLONASE [Concomitant]
     Dosage: UNK
     Route: 048
  15. TRASYLOL [Suspect]
     Dosage: 50 ML/HOUR INFUSION
     Route: 042
     Dates: start: 20031223, end: 20031223
  16. ZETIA [Concomitant]
     Dosage: UNK
     Route: 048
  17. TRASYLOL [Suspect]
     Indication: CORONARY ARTERY BYPASS
     Dosage: 1 ML, UNK
     Route: 042
     Dates: start: 20031223, end: 20031223
  18. LEXAPRO [Concomitant]
     Dosage: UNK
     Route: 048
  19. PROTONIX [Concomitant]
     Dosage: UNK
     Route: 048
  20. HYDROCODONE [Concomitant]
     Dosage: UNK
     Route: 048
  21. CARDIZEM [Concomitant]
     Dosage: 5 ML INFUSED
     Route: 042
     Dates: start: 20031223, end: 20031223
  22. DIOVAN [Concomitant]
     Route: 048
  23. DARVOCET [Concomitant]
     Dosage: UNK
     Route: 048
  24. VERSED [Concomitant]
     Dosage: 10 MG TOTAL INFUSED
     Route: 042
     Dates: start: 20031223, end: 20031223
  25. PANCURONIUM [Concomitant]
     Dosage: 15 MG TOTAL INFUSED
     Route: 042
     Dates: start: 20031223, end: 20031223
  26. NITROGLYCERIN [Concomitant]
     Dosage: 50 MCG TOTAL INFUSED
     Route: 042
     Dates: start: 20031223, end: 20031223

REACTIONS (4)
  - ANXIETY [None]
  - RENAL FAILURE [None]
  - EMOTIONAL DISTRESS [None]
  - INJURY [None]
